FAERS Safety Report 4690208-2 (Version None)
Quarter: 2005Q2

REPORT INFORMATION
  Report Type: 
  Country: None (occurrence: None)
  Receive Date: 20050613
  Receipt Date: 20050602
  Transmission Date: 20051028
  Serious: Yes (Other)
  Sender: FDA-Public Use
  Company Number: 2005046003

PATIENT
  Sex: Female

DRUGS (3)
  1. PHENYTOIN [Suspect]
     Indication: CONVULSION
     Dosage: 300 MG, UNKNOWN
     Route: 065
  2. GABAPENTIN [Suspect]
     Indication: CONVULSION
     Dosage: UNKNOWN
     Route: 065
  3. LIPITOR [Suspect]
     Indication: ILL-DEFINED DISORDER
     Dosage: UNKNOWN
     Route: 065

REACTIONS (5)
  - CONVULSION [None]
  - DIARRHOEA [None]
  - DRUG INEFFECTIVE [None]
  - NAUSEA [None]
  - TRANSIENT ISCHAEMIC ATTACK [None]
